FAERS Safety Report 7123719-0 (Version None)
Quarter: 2010Q4

REPORT INFORMATION
  Report Type: 
  Country: None (occurrence: None)
  Receive Date: 20101125
  Receipt Date: 20101112
  Transmission Date: 20110411
  Serious: Yes (Other)
  Sender: FDA-Public Use
  Company Number: PHHY2009TW61017

PATIENT
  Sex: Male

DRUGS (3)
  1. EXJADE [Suspect]
     Indication: MYELODYSPLASTIC SYNDROME
     Dosage: 1500 MG
     Route: 048
  2. EXJADE [Suspect]
     Dosage: 1750 MG
     Route: 048
  3. EXJADE [Suspect]
     Dosage: 1250 MG, UNK
     Route: 048

REACTIONS (8)
  - CHEST PAIN [None]
  - ERYTHEMA [None]
  - FATIGUE [None]
  - HAEMATOCHEZIA [None]
  - HAEMORRHAGE [None]
  - JOINT SWELLING [None]
  - MUSCLE SPASMS [None]
  - ROAD TRAFFIC ACCIDENT [None]
